FAERS Safety Report 20993728 (Version 1)
Quarter: 2022Q2

REPORT INFORMATION
  Report Type: Spontaneous
  Country: US (occurrence: None)
  Receive Date: 20220622
  Receipt Date: 20220622
  Transmission Date: 20220721
  Serious: Yes (Other)
  Sender: FDA-Public Use
  Company Number: US-ROCHE-3116933

PATIENT
  Sex: Male
  Weight: 79.450 kg

DRUGS (4)
  1. ESBRIET [Suspect]
     Active Substance: PIRFENIDONE
     Indication: Product used for unknown indication
     Route: 048
     Dates: end: 20220604
  2. TYVASO [Suspect]
     Active Substance: TREPROSTINIL
     Indication: Pulmonary arterial hypertension
     Route: 048
     Dates: start: 20220428
  3. ELIQUIS [Concomitant]
     Active Substance: APIXABAN
  4. TADALAFIL [Concomitant]
     Active Substance: TADALAFIL

REACTIONS (3)
  - Depression suicidal [Recovered/Resolved]
  - Upper respiratory tract infection [Recovered/Resolved]
  - Rash erythematous [Recovered/Resolved]
